FAERS Safety Report 8174243 (Version 4)
Quarter: 2013Q3

REPORT INFORMATION
  Report Type: Report from Study
  Country: US (occurrence: US)
  Receive Date: 20111010
  Receipt Date: 20130715
  Transmission Date: 20140515
  Serious: Yes (Hospitalization)
  Sender: FDA-Public Use
  Company Number: US-BRISTOL-MYERS SQUIBB COMPANY-15962160

PATIENT
  Age: 71 Year
  Sex: Female

DRUGS (5)
  1. SAXAGLIPTIN [Suspect]
     Indication: TYPE 2 DIABETES MELLITUS
     Dates: start: 20110223, end: 20110807
  2. GLIPIZIDE [Suspect]
     Indication: TYPE 2 DIABETES MELLITUS
     Dates: end: 20110812
  3. LANTUS [Suspect]
     Indication: TYPE 2 DIABETES MELLITUS
  4. COUMADIN [Suspect]
     Dates: end: 20110807
  5. PLAVIX [Suspect]

REACTIONS (1)
  - Gastritis [Recovered/Resolved]
